FAERS Safety Report 9563970 (Version 4)
Quarter: 2014Q2

REPORT INFORMATION
  Report Type: Report from Study
  Country: BR (occurrence: BR)
  Receive Date: 20130928
  Receipt Date: 20140502
  Transmission Date: 20141212
  Serious: Yes (Other)
  Sender: FDA-Public Use
  Company Number: BR-ROCHE-1266772

PATIENT
  Sex: Female
  Weight: 80 kg

DRUGS (8)
  1. MABTHERA [Suspect]
     Indication: RHEUMATOID ARTHRITIS
     Route: 042
     Dates: start: 20130710
  2. MABTHERA [Suspect]
     Dosage: SECOND INFUSION
     Route: 042
     Dates: start: 20130725
  3. MABTHERA [Suspect]
     Route: 042
     Dates: start: 20140108
  4. MABTHERA [Suspect]
     Route: 042
     Dates: start: 20140122
  5. RIVOTRIL [Suspect]
     Indication: PRODUCT USED FOR UNKNOWN INDICATION
     Route: 065
  6. ENALAPRIL [Concomitant]
  7. FUROSEMIDE [Concomitant]
  8. CALCITRIOL [Concomitant]
     Indication: RENAL DISORDER

REACTIONS (7)
  - Depression [Recovered/Resolved]
  - Arthralgia [Recovering/Resolving]
  - Gait disturbance [Not Recovered/Not Resolved]
  - Drug ineffective [Unknown]
  - Cyst [Unknown]
  - Joint swelling [Unknown]
  - Joint destruction [Unknown]
